FAERS Safety Report 7659477-0 (Version None)
Quarter: 2011Q3

REPORT INFORMATION
  Report Type: 
  Country: None (occurrence: None)
  Receive Date: 20110805
  Receipt Date: 20110803
  Transmission Date: 20111222
  Serious: Yes (Congenital Anomaly, Other)
  Sender: FDA-Public Use
  Company Number: US-PFIZER INC-2008050202

PATIENT
  Sex: Female
  Weight: 3 kg

DRUGS (7)
  1. ZOLOFT [Suspect]
     Indication: ANXIETY
  2. ZOLOFT [Suspect]
     Indication: OBSESSIVE-COMPULSIVE DISORDER
     Dosage: 50 MG, UNK
     Route: 064
     Dates: start: 20000101
  3. PROMETRIUM [Concomitant]
     Dosage: 200 MG, UNK
     Route: 064
     Dates: start: 20041119
  4. ZOLOFT [Suspect]
     Indication: DEPRESSION
  5. PROMETRIUM [Concomitant]
     Dosage: 100 MG, UNK
     Route: 064
     Dates: start: 20041124
  6. LEXAPRO [Concomitant]
     Dosage: UNK
     Route: 064
  7. ZOLOFT [Suspect]
     Indication: STRESS

REACTIONS (8)
  - CARDIAC VALVE DISEASE [None]
  - OTITIS MEDIA CHRONIC [None]
  - JAUNDICE NEONATAL [None]
  - MATERNAL EXPOSURE DURING PREGNANCY [None]
  - ATRIAL SEPTAL DEFECT [None]
  - PLASMINOGEN ACTIVATOR INHIBITOR [None]
  - PERSISTENT FOETAL CIRCULATION [None]
  - LUNG DISORDER [None]
